FAERS Safety Report 16916636 (Version 2)
Quarter: 2019Q4

REPORT INFORMATION
  Report Type: Report from Study
  Country: None (occurrence: KR)
  Receive Date: 20191014
  Receipt Date: 20191016
  Transmission Date: 20200122
  Serious: Yes (Other)
  Sender: FDA-Public Use
  Company Number: KR-ABBVIE-19K-090-2962666-00

PATIENT
  Sex: Female
  Weight: 45 kg

DRUGS (3)
  1. HUMIRA [Suspect]
     Active Substance: ADALIMUMAB
     Indication: CROHN^S DISEASE
     Route: 058
     Dates: start: 20181213, end: 20181213
  2. HUMIRA [Suspect]
     Active Substance: ADALIMUMAB
     Route: 058
     Dates: start: 20190110, end: 201903
  3. HUMIRA [Suspect]
     Active Substance: ADALIMUMAB
     Route: 058
     Dates: start: 20181227, end: 20181227

REACTIONS (2)
  - Gastrointestinal inflammation [Unknown]
  - Duodenitis [Unknown]

NARRATIVE: CASE EVENT DATE: 2019
